FAERS Safety Report 17472232 (Version 1)
Quarter: 2020Q1

REPORT INFORMATION
  Report Type: Spontaneous
  Country: FR (occurrence: FR)
  Receive Date: 20200228
  Receipt Date: 20200228
  Transmission Date: 20200409
  Serious: Yes (Hospitalization)
  Sender: FDA-Public Use
  Company Number: FR-ACCORD-173812

PATIENT
  Age: 62 Year
  Sex: Female

DRUGS (12)
  1. IRINOTECAN MYLAN [Suspect]
     Active Substance: IRINOTECAN
     Indication: PANCREATIC CARCINOMA METASTATIC
     Route: 042
     Dates: start: 20200113, end: 20200113
  2. INNOHEP [Concomitant]
     Active Substance: TINZAPARIN SODIUM
     Dates: start: 20200114, end: 20200121
  3. ACTISKENAN [Concomitant]
     Active Substance: MORPHINE SULFATE
     Dosage: STRENGTH-10 MG
     Route: 048
     Dates: start: 20200108
  4. DAFALGAN [Concomitant]
     Active Substance: ACETAMINOPHEN
     Route: 048
     Dates: start: 20200108
  5. PRIMPERAN [Concomitant]
     Active Substance: METOCLOPRAMIDE HYDROCHLORIDE
     Dates: start: 20200114
  6. XANAX 0 [Concomitant]
     Dosage: STRENGTH-0.25 MG, SCORED TABLET
     Dates: start: 20200108
  7. LANZOR [Concomitant]
     Active Substance: LANSOPRAZOLE
     Dosage: STRENGTH-15 MG, GASTRO-RESISTANT MICROGRANULES IN A CAPSULE
     Dates: start: 20200108
  8. OXALIPLATINE ACCORD [Suspect]
     Active Substance: OXALIPLATIN
     Indication: PANCREATIC CARCINOMA METASTATIC
     Route: 042
     Dates: start: 20200113, end: 20200113
  9. SERESTA [Concomitant]
     Active Substance: OXAZEPAM
     Dosage: STRENGTH-10 MG
     Route: 048
     Dates: start: 20200108
  10. NIVESTIM [Concomitant]
     Active Substance: FILGRASTIM
     Dates: start: 20200117, end: 20200120
  11. FLUOROURACILE PFIZER [Suspect]
     Active Substance: FLUOROURACIL
     Indication: PANCREATIC CARCINOMA METASTATIC
     Dosage: 350 MB BOLUS + 3100 MG CONTINUED
     Route: 042
     Dates: start: 20200113, end: 20200115
  12. DUROGESIC [Concomitant]
     Active Substance: FENTANYL
     Dates: start: 20200108

REACTIONS (1)
  - Disseminated intravascular coagulation [Recovered/Resolved]

NARRATIVE: CASE EVENT DATE: 20200119
